FAERS Safety Report 5018065-5 (Version None)
Quarter: 2006Q2

REPORT INFORMATION
  Report Type: 
  Country: None (occurrence: None)
  Receive Date: 20060530
  Receipt Date: 20060519
  Transmission Date: 20061013
  Serious: Yes (Disabling)
  Sender: FDA-Public Use
  Company Number: 2006039021

PATIENT
  Age: 72 Year
  Sex: Female
  Weight: 59.8748 kg

DRUGS (4)
  1. LIPITOR [Suspect]
     Indication: BLOOD CHOLESTEROL INCREASED
     Dosage: 10 MG (10 MG, 1 IN 1 D)
     Dates: start: 20050505, end: 20060101
  2. NEXIUM [Concomitant]
  3. CALCIUM (CALCIUM) [Concomitant]
  4. VITAMINS (VITAMINS) [Concomitant]

REACTIONS (9)
  - BONE DISORDER [None]
  - HIP FRACTURE [None]
  - MICTURITION URGENCY [None]
  - MUSCLE DISORDER [None]
  - PAIN [None]
  - PAIN IN EXTREMITY [None]
  - PELVIC FRACTURE [None]
  - RENAL DISORDER [None]
  - URINE FLOW DECREASED [None]
